FAERS Safety Report 18812396 (Version 2)
Quarter: 2021Q1

REPORT INFORMATION
  Report Type: Report from Study
  Country: US (occurrence: US)
  Receive Date: 20210130
  Receipt Date: 20210317
  Transmission Date: 20210419
  Serious: No
  Sender: FDA-Public Use
  Company Number: NVSC2021US013165

PATIENT
  Age: 22 Year
  Sex: Female

DRUGS (1)
  1. COSENTYX [Suspect]
     Active Substance: SECUKINUMAB
     Indication: PSORIASIS
     Dosage: 300 MG, Q4W
     Route: 058

REACTIONS (6)
  - Illness [Unknown]
  - Psoriasis [Unknown]
  - Erythema [Unknown]
  - Product dose omission issue [Unknown]
  - COVID-19 [Unknown]
  - Eye irritation [Unknown]
